FAERS Safety Report 17761644 (Version 1)
Quarter: 2020Q2

REPORT INFORMATION
  Report Type: Spontaneous
  Country: ES (occurrence: ES)
  Receive Date: 20200508
  Receipt Date: 20200508
  Transmission Date: 20200714
  Serious: Yes (Life-Threatening, Hospitalization)
  Sender: FDA-Public Use
  Company Number: ES-CADILA HEALTHCARE LIMITED-ES-ZYDUS-027501

PATIENT

DRUGS (3)
  1. ACTRAPID [Suspect]
     Active Substance: INSULIN HUMAN
     Indication: INTENTIONAL OVERDOSE
     Dosage: 5 PRE-FILLED PENS OF 3 ML
     Route: 058
     Dates: start: 20160522, end: 20160522
  2. METFORMIN [Suspect]
     Active Substance: METFORMIN HYDROCHLORIDE
     Indication: INTENTIONAL OVERDOSE
     Route: 048
     Dates: start: 20160522, end: 20160522
  3. LEVEMIR [Suspect]
     Active Substance: INSULIN DETEMIR
     Indication: INTENTIONAL OVERDOSE
     Dosage: INJECTABLE SOLUTION IN A PRE-CHARGED PEN, 5 PRE-FILLED 3 ML PENS
     Route: 058
     Dates: start: 20160522, end: 20160522

REACTIONS (2)
  - Intentional overdose [Recovered/Resolved]
  - Hypoglycaemic coma [Recovered/Resolved]

NARRATIVE: CASE EVENT DATE: 20160522
